FAERS Safety Report 4506063-7 (Version None)
Quarter: 2004Q4

REPORT INFORMATION
  Report Type: 
  Country: None (occurrence: None)
  Receive Date: 20041025
  Receipt Date: 20040607
  Transmission Date: 20050328
  Serious: Yes (Other)
  Sender: FDA-Public Use
  Company Number: US-JNJFOC-20040502211

PATIENT
  Age: 54 Year
  Sex: Male
  Weight: 99.7913 kg

DRUGS (11)
  1. REMICADE [Suspect]
     Indication: RHEUMATOID ARTHRITIS
     Dosage: SEE IMAGE
     Route: 042
     Dates: start: 20020101
  2. REMICADE [Suspect]
     Indication: RHEUMATOID ARTHRITIS
     Dosage: SEE IMAGE
     Route: 042
     Dates: start: 20040505
  3. DURAGESIC [Concomitant]
  4. MOBIC [Concomitant]
  5. VERELAN (VERAPAMIL HYDROCHLORIDE) TABLETS [Concomitant]
  6. ACIPHEX [Concomitant]
  7. CELEXA (CITALOPRAM HYDROBROMIDE) TABLETS [Concomitant]
  8. CENTRUM (CENTRUM) TABLETS [Concomitant]
  9. VIAGRA [Concomitant]
  10. QUININE SULFATE (QUININE SULFATE) [Concomitant]
  11. MIRALAX [Concomitant]

REACTIONS (1)
  - ANAPHYLACTIC REACTION [None]
